FAERS Safety Report 11197448 (Version 3)
Quarter: 2015Q3

REPORT INFORMATION
  Report Type: Report from Study
  Country: IT (occurrence: IT)
  Receive Date: 20150617
  Receipt Date: 20150803
  Transmission Date: 20151125
  Serious: Yes (Life-Threatening, Hospitalization)
  Sender: FDA-Public Use
  Company Number: IT-GLAXOSMITHKLINE-IT2015070764

PATIENT
  Age: 69 Year
  Sex: Female
  Weight: 42 kg

DRUGS (4)
  1. ELTROMBOPAG [Suspect]
     Active Substance: ELTROMBOPAG
     Indication: MYELODYSPLASTIC SYNDROME
     Dosage: 200 MG, QD
     Route: 048
     Dates: start: 20150519
  2. ELTROMBOPAG [Suspect]
     Active Substance: ELTROMBOPAG
     Indication: THROMBOCYTOPENIA
  3. METHYLPREDNISOLON [Concomitant]
     Active Substance: METHYLPREDNISOLONE
     Indication: PRODUCT USED FOR UNKNOWN INDICATION
     Route: 042
     Dates: start: 20150521, end: 20150526
  4. AZACITIDINE. [Concomitant]
     Active Substance: AZACITIDINE
     Indication: MYELODYSPLASTIC SYNDROME
     Dosage: 75 MG/M2, CYC
     Route: 058
     Dates: start: 20150519

REACTIONS (1)
  - Oxygen saturation decreased [Recovered/Resolved]

NARRATIVE: CASE EVENT DATE: 20150521
